FAERS Safety Report 5537711-0 (Version None)
Quarter: 2007Q4

REPORT INFORMATION
  Report Type: 
  Country: None (occurrence: None)
  Receive Date: 20071207
  Receipt Date: 20071127
  Transmission Date: 20080405
  Serious: Yes (Hospitalization, Other)
  Sender: FDA-Public Use
  Company Number: US-JNJFOC-20071110255

PATIENT
  Sex: Female
  Weight: 73.48 kg

DRUGS (10)
  1. DURAGESIC-100 [Suspect]
     Dosage: 1X 100 UG/HR PATCH PLUS 1X 25 UG/HR PATCH
     Route: 062
  2. DURAGESIC-100 [Suspect]
     Route: 062
  3. DURAGESIC-100 [Suspect]
     Route: 062
  4. DURAGESIC-100 [Suspect]
     Route: 062
  5. DURAGESIC-100 [Suspect]
     Indication: BONE PAIN
     Route: 062
  6. FENTANYL TRANSDERMAL SYSTEM [Suspect]
     Dosage: 1X 50 UG/HR PATCH PLUS 1X 25 UG/HR PATCH
     Route: 062
  7. FENTANYL TRANSDERMAL SYSTEM [Suspect]
     Route: 062
  8. FENTANYL TRANSDERMAL SYSTEM [Suspect]
     Indication: BONE PAIN
     Route: 062
  9. MORPHINE [Suspect]
     Indication: BONE PAIN
     Route: 065
  10. PREDNISONE TAB [Concomitant]
     Indication: AUTOIMMUNE DISORDER
     Route: 065

REACTIONS (16)
  - ANXIETY [None]
  - BLOOD CHOLESTEROL INCREASED [None]
  - BONE DISORDER [None]
  - BONE PAIN [None]
  - BREAKTHROUGH PAIN [None]
  - CHOLELITHIASIS [None]
  - COMA [None]
  - CONSTIPATION [None]
  - DEPRESSION [None]
  - FALL [None]
  - GAIT DISTURBANCE [None]
  - INCORRECT DRUG ADMINISTRATION DURATION [None]
  - MUSCULAR WEAKNESS [None]
  - MYOCARDIAL INFARCTION [None]
  - OVERDOSE [None]
  - SPINAL FRACTURE [None]
